FAERS Safety Report 4659701-2 (Version None)
Quarter: 2005Q2

REPORT INFORMATION
  Report Type: 
  Country: None (occurrence: None)
  Receive Date: 20050420
  Receipt Date: 20050218
  Transmission Date: 20051028
  Serious: No
  Sender: FDA-Public Use
  Company Number: PHEH2005US02257

PATIENT
  Age: 80 Year
  Sex: Female

DRUGS (5)
  1. ENABLEX [Suspect]
     Indication: INCONTINENCE
     Dosage: 15 MG, QD, ORAL
     Route: 048
     Dates: start: 20050218
  2. ATENOLOL [Concomitant]
  3. HYDROCHLOROTHIAZIDE [Concomitant]
  4. ZOLOFT [Concomitant]
  5. MOBIC [Concomitant]

REACTIONS (1)
  - HEADACHE [None]
